FAERS Safety Report 5644176-7 (Version None)
Quarter: 2008Q1

REPORT INFORMATION
  Report Type: 
  Country: None (occurrence: None)
  Receive Date: 20080227
  Receipt Date: 20080227
  Transmission Date: 20080703
  Serious: Yes (Hospitalization)
  Sender: FDA-Public Use
  Company Number: None

PATIENT
  Age: 60 Year
  Sex: Male

DRUGS (2)
  1. WARFARIN SODIUM [Suspect]
     Indication: ANTICOAGULANT THERAPY
     Dosage: 7.5MG EVERY DAY PO
     Route: 048
     Dates: start: 20070419, end: 20070419
  2. HEPARIN SODIUM 1,000 UNITS IN DEXTROSE 5% [Suspect]
     Indication: ANTICOAGULANT THERAPY

REACTIONS (2)
  - HAEMATOMA [None]
  - RETROPERITONEAL HAEMORRHAGE [None]
